FAERS Safety Report 11027029 (Version 2)
Quarter: 2015Q2

REPORT INFORMATION
  Report Type: Spontaneous
  Country: US (occurrence: US)
  Receive Date: 20150414
  Receipt Date: 20150525
  Transmission Date: 20150821
  Serious: No
  Sender: FDA-Public Use
  Company Number: US-JNJFOC-20120513593

PATIENT
  Age: 32 Year
  Sex: Female
  Weight: 39.92 kg

DRUGS (3)
  1. ^VITAMINS^ (NOS) [Concomitant]
     Route: 065
  2. STOOL SOFTENER [Interacting]
     Active Substance: DOCUSATE CALCIUM
     Indication: HAEMORRHOIDS
     Route: 065
  3. ORTHO TRI CYCLEN LO [Suspect]
     Active Substance: ETHINYL ESTRADIOL\NORGESTIMATE
     Indication: CONTRACEPTION
     Route: 048
     Dates: start: 20120419

REACTIONS (5)
  - Polymenorrhoea [Recovered/Resolved]
  - Gastrointestinal disorder [Not Recovered/Not Resolved]
  - Diarrhoea [Not Recovered/Not Resolved]
  - Drug interaction [Unknown]
  - Abdominal pain upper [Not Recovered/Not Resolved]

NARRATIVE: CASE EVENT DATE: 2012
